FAERS Safety Report 19073200 (Version 1)
Quarter: 2021Q1

REPORT INFORMATION
  Report Type: Spontaneous
  Country: US (occurrence: US)
  Receive Date: 20210330
  Receipt Date: 20210330
  Transmission Date: 20210420
  Serious: No
  Sender: FDA-Public Use
  Company Number: US-BAYER-2021-114008

PATIENT
  Age: 73 Year
  Sex: Female

DRUGS (1)
  1. ALEVE [Suspect]
     Active Substance: NAPROXEN SODIUM
     Indication: PERIPHERAL SWELLING
     Dosage: 1 DF, BID
     Route: 048
     Dates: start: 20210323, end: 20210329

REACTIONS (4)
  - Product use in unapproved indication [Unknown]
  - Inflammation [None]
  - Off label use [Unknown]
  - Product commingling [None]

NARRATIVE: CASE EVENT DATE: 202103
